FAERS Safety Report 7504897-8 (Version None)
Quarter: 2011Q2

REPORT INFORMATION
  Report Type: 
  Country: None (occurrence: None)
  Receive Date: 20110526
  Receipt Date: 20110517
  Transmission Date: 20111010
  Serious: Yes (Death)
  Sender: FDA-Public Use
  Company Number: US-BIOGENIDEC-2011BI018532

PATIENT
  Age: 46 Year
  Sex: Female

DRUGS (12)
  1. VALIUM [Concomitant]
     Indication: SLEEP DISORDER
     Route: 048
     Dates: start: 20081001
  2. ZANAFLEX [Concomitant]
     Indication: MUSCLE SPASTICITY
     Route: 048
     Dates: start: 19990101
  3. CORRECTAL [Concomitant]
     Indication: CONSTIPATION
     Route: 048
     Dates: start: 20090301
  4. VEGETABLE OIL CAPSULE [Concomitant]
     Indication: CONSTIPATION
     Route: 048
     Dates: start: 20090301
  5. ENABLEX [Concomitant]
     Indication: BLADDER SPASM
     Route: 048
     Dates: start: 20060101
  6. SYNTHROID [Concomitant]
     Indication: HYPOTHYROIDISM
     Route: 048
     Dates: start: 19850101
  7. ASPIRIN [Concomitant]
     Indication: ANTICOAGULANT THERAPY
     Route: 048
     Dates: start: 20081101
  8. LEXAPRO [Concomitant]
     Indication: DEPRESSION
     Route: 048
     Dates: start: 20090601
  9. AMITIZA [Concomitant]
     Indication: INTESTINAL FUNCTIONAL DISORDER
     Route: 048
     Dates: start: 20070101
  10. TYSABRI [Suspect]
     Indication: MULTIPLE SCLEROSIS
     Route: 042
     Dates: start: 20080416, end: 20091203
  11. BACLOFEN [Concomitant]
     Indication: MUSCLE SPASMS
     Route: 048
     Dates: start: 19980101
  12. FLEXERIL [Concomitant]
     Indication: MUSCLE RELAXANT THERAPY
     Route: 048
     Dates: start: 19990101

REACTIONS (1)
  - RESPIRATORY FAILURE [None]
